FAERS Safety Report 11498781 (Version 1)
Quarter: 2015Q3

REPORT INFORMATION
  Report Type: Spontaneous
  Country: US (occurrence: US)
  Receive Date: 20150912
  Receipt Date: 20150912
  Transmission Date: 20151125
  Serious: No
  Sender: FDA-Public Use
  Company Number: US-GLENMARK PHARMACEUTICALS INC, USA.-2014GMK011281

PATIENT
  Sex: Female

DRUGS (2)
  1. NORETHINDRONE ACETATE TABLETS [Suspect]
     Active Substance: NORETHINDRONE ACETATE
     Dosage: 5 MG, QD
  2. LUPRON [Suspect]
     Active Substance: LEUPROLIDE ACETATE
     Dosage: 3.75 MG, EVERY MONTH

REACTIONS (1)
  - Alopecia [Unknown]
